FAERS Safety Report 7356081-9 (Version None)
Quarter: 2011Q1

REPORT INFORMATION
  Report Type: 
  Country: None (occurrence: None)
  Receive Date: 20110316
  Receipt Date: 20110306
  Transmission Date: 20110831
  Serious: Yes (Hospitalization)
  Sender: FDA-Public Use
  Company Number: GB-EISAI INC-E7389-01138-CLI-GB

PATIENT
  Sex: Female
  Weight: 59 kg

DRUGS (8)
  1. CLEXANE [Concomitant]
     Dates: start: 20100101
  2. CO CODAMOL [Concomitant]
     Indication: NECK PAIN
     Route: 065
     Dates: start: 20100225
  3. E7389 (BOLD) [Suspect]
     Route: 041
     Dates: start: 20101124
  4. CAPECITABINE [Concomitant]
     Route: 048
     Dates: start: 20101124, end: 20101208
  5. LANSOPRAZOLE [Concomitant]
     Dates: start: 20090101
  6. CAPECITABINE [Concomitant]
     Route: 048
     Dates: start: 20100105
  7. CAPECITABINE [Concomitant]
     Route: 048
     Dates: start: 20101215, end: 20101229
  8. PARACETAMOL [Concomitant]
     Indication: PAIN
     Dates: start: 20090101

REACTIONS (3)
  - NEUTROPENIC SEPSIS [None]
  - URINARY TRACT INFECTION [None]
  - INFECTION [None]
